FAERS Safety Report 5040376-8 (Version None)
Quarter: 2006Q2

REPORT INFORMATION
  Report Type: 
  Country: None (occurrence: None)
  Receive Date: 20060630
  Receipt Date: 20060620
  Transmission Date: 20061013
  Serious: Yes (Other)
  Sender: FDA-Public Use
  Company Number: PHBS2006BR09337

PATIENT
  Age: 45 Year
  Sex: Female
  Weight: 48 kg

DRUGS (3)
  1. GLEEVEC [Suspect]
     Indication: CHRONIC MYELOID LEUKAEMIA
     Dosage: 400 MG, QD
     Route: 048
  2. SYNTHROID [Concomitant]
     Indication: HYPOTHYROIDISM
     Dosage: 45 UG, QD
     Route: 048
  3. ANAFRANIL [Concomitant]
     Indication: COELIAC DISEASE
     Dosage: 25 MG, QD
     Route: 048
     Dates: start: 20050101

REACTIONS (9)
  - ASTHENIA [None]
  - COELIAC DISEASE [None]
  - DIARRHOEA [None]
  - FATIGUE [None]
  - FEELING ABNORMAL [None]
  - HYPOTENSION [None]
  - HYPOTHYROIDISM [None]
  - NAUSEA [None]
  - VOMITING [None]
